FAERS Safety Report 15647805 (Version 1)
Quarter: 2018Q4

REPORT INFORMATION
  Report Type: Spontaneous
  Country: FR (occurrence: FR)
  Receive Date: 20181122
  Receipt Date: 20181122
  Transmission Date: 20190205
  Serious: Yes (Other)
  Sender: FDA-Public Use
  Company Number: FR-BEH-2018096052

PATIENT
  Age: 6 Year
  Sex: Female
  Weight: 23 kg

DRUGS (5)
  1. PRIVIGEN [Suspect]
     Active Substance: HUMAN IMMUNOGLOBULIN G
     Dosage: UNK
     Route: 041
  2. MYDRIATICUM [Concomitant]
     Active Substance: TROPICAMIDE
     Indication: FUNDOSCOPY
     Dosage: UNK
     Route: 047
     Dates: start: 20181005, end: 20181005
  3. PRIVIGEN [Suspect]
     Active Substance: HUMAN IMMUNOGLOBULIN G
     Dosage: UNK
     Route: 041
  4. PRIVIGEN [Suspect]
     Active Substance: HUMAN IMMUNOGLOBULIN G
     Indication: CENTRAL NERVOUS SYSTEM VASCULITIS
     Dosage: 25 G, TOT
     Route: 041
     Dates: start: 20181004, end: 20181005
  5. NEOSYNEPHRINE [Concomitant]
     Active Substance: PHENYLEPHRINE HYDROCHLORIDE
     Indication: FUNDOSCOPY
     Dosage: UNK
     Route: 047
     Dates: start: 20181005, end: 20181005

REACTIONS (6)
  - Rash pruritic [Recovered/Resolved]
  - Toxic skin eruption [Recovered/Resolved]
  - Pyrexia [Recovered/Resolved]
  - Lip oedema [Recovered/Resolved]
  - Drug eruption [Recovered/Resolved]
  - Eyelid oedema [Recovered/Resolved]

NARRATIVE: CASE EVENT DATE: 20181005
